FAERS Safety Report 8450463-X (Version None)
Quarter: 2012Q2

REPORT INFORMATION
  Report Type: 
  Country: None (occurrence: None)
  Receive Date: 20120620
  Receipt Date: 20120614
  Transmission Date: 20120825
  Serious: Yes (Death)
  Sender: FDA-Public Use
  Company Number: CO-ASTELLAS-2012US005447

PATIENT
  Age: 21 Year
  Sex: Male

DRUGS (4)
  1. PROGRAF [Suspect]
     Indication: HEART TRANSPLANT
     Dosage: 4 MG, Q12 HOURS
     Route: 048
     Dates: start: 20110621
  2. PREDNISOLONE [Concomitant]
     Indication: PRODUCT USED FOR UNKNOWN INDICATION
     Dosage: UNK
     Route: 065
  3. MYCOPHENOLATE MOFETIL [Concomitant]
     Indication: PRODUCT USED FOR UNKNOWN INDICATION
     Dosage: UNK
     Route: 065
  4. ACETYLSALICYLIC ACID SRT [Concomitant]
     Indication: PRODUCT USED FOR UNKNOWN INDICATION
     Dosage: UNK
     Route: 065

REACTIONS (1)
  - CARDIO-RESPIRATORY ARREST [None]
